FAERS Safety Report 8125461-6 (Version None)
Quarter: 2012Q1

REPORT INFORMATION
  Report Type: 
  Country: None (occurrence: None)
  Receive Date: 20120209
  Receipt Date: 20120206
  Transmission Date: 20120608
  Serious: Yes (Other)
  Sender: FDA-Public Use
  Company Number: US-PFIZER INC-2010027596

PATIENT
  Sex: Female
  Weight: 63.49 kg

DRUGS (6)
  1. CELEBREX [Suspect]
     Indication: ARTHRITIS
  2. CELEBREX [Suspect]
     Indication: FIBROMYALGIA
     Dosage: 200 MG, DAILY
     Route: 048
     Dates: start: 20070101
  3. TEMAZEPAM [Concomitant]
     Dosage: UNK
  4. LYRICA [Suspect]
     Indication: NEUROPATHY PERIPHERAL
     Dosage: 300 MG, 2X/DAY
     Route: 048
     Dates: start: 20070101
  5. LYRICA [Suspect]
     Indication: FIBROMYALGIA
  6. SYNTHROID [Concomitant]
     Indication: THYROID DISORDER
     Dosage: UNK
     Dates: start: 20050101

REACTIONS (5)
  - VITAMIN D DECREASED [None]
  - HEADACHE [None]
  - KNEE ARTHROPLASTY [None]
  - DRUG WITHDRAWAL SYNDROME [None]
  - NAUSEA [None]
